FAERS Safety Report 9603084 (Version 1)
Quarter: 2013Q4

REPORT INFORMATION
  Report Type: Spontaneous
  Country: US (occurrence: US)
  Receive Date: 20131007
  Receipt Date: 20131007
  Transmission Date: 20140711
  Serious: Yes (Hospitalization)
  Sender: FDA-Public Use
  Company Number: US-SA-2013SA096131

PATIENT
  Age: 66 Year
  Sex: Male

DRUGS (17)
  1. PLAVIX [Suspect]
     Route: 065
  2. ORLISTAT [Suspect]
     Indication: WEIGHT LOSS DIET
     Route: 065
  3. ORLISTAT [Suspect]
     Indication: WEIGHT LOSS DIET
     Route: 065
     Dates: start: 20130912
  4. NICOTINIC ACID [Concomitant]
  5. METFORMIN HYDROCHLORIDE [Concomitant]
  6. GLIPIZIDE [Concomitant]
  7. ESOMEPRAZOLE [Concomitant]
  8. DILTIAZEM HYDROCHLORIDE [Concomitant]
  9. ENALAPRIL [Concomitant]
  10. WARFARIN SODIUM [Concomitant]
  11. COUMADIN [Concomitant]
  12. DIGOXIN [Concomitant]
  13. CRESTOR [Concomitant]
  14. POTASSIUM [Concomitant]
  15. ACTOS [Concomitant]
  16. VICTOZA [Concomitant]
  17. ALL OTHER THERAPEUTIC PRODUCTS [Concomitant]

REACTIONS (5)
  - Fluid retention [Not Recovered/Not Resolved]
  - Weight increased [Not Recovered/Not Resolved]
  - Urine output decreased [Not Recovered/Not Resolved]
  - Lung disorder [Unknown]
  - Cardiac failure congestive [Unknown]
